FAERS Safety Report 4681890-4 (Version None)
Quarter: 2005Q2

REPORT INFORMATION
  Report Type: 
  Country: None (occurrence: None)
  Receive Date: 20050602
  Receipt Date: 20050519
  Transmission Date: 20051028
  Serious: Yes (Hospitalization)
  Sender: FDA-Public Use
  Company Number: 2005JP001016

PATIENT
  Age: 29 Year
  Sex: Male

DRUGS (6)
  1. PROGRAF [Suspect]
     Indication: RENAL TRANSPLANT
  2. PREDNISOLONE [Concomitant]
  3. MYCOPHENOLATE MOFETIL [Concomitant]
  4. GANCICLOVIR [Concomitant]
  5. G-CSF (GRANULOCYTE COLONY STIMULATING FACTOR) [Concomitant]
  6. IMMUNE GLOBULIN INTRAVENOUS (HUMAN) [Concomitant]

REACTIONS (5)
  - ANTIPHOSPHOLIPID SYNDROME [None]
  - CYTOMEGALOVIRUS ANTIGEN POSITIVE [None]
  - PLATELET COUNT DECREASED [None]
  - PULMONARY INFARCTION [None]
  - WHITE BLOOD CELL COUNT DECREASED [None]
